FAERS Safety Report 12584870 (Version 6)
Quarter: 2016Q4

REPORT INFORMATION
  Report Type: Spontaneous
  Country: BE (occurrence: BE)
  Receive Date: 20160722
  Receipt Date: 20161114
  Transmission Date: 20170207
  Serious: Yes (Death, Hospitalization)
  Sender: FDA-Public Use
  Company Number: BE-ASTRAZENECA-2016SE77509

PATIENT
  Age: 72 Year
  Sex: Male

DRUGS (24)
  1. BYDUREON [Suspect]
     Active Substance: EXENATIDE
     Route: 065
     Dates: start: 201503
  2. AMLOR [Concomitant]
     Active Substance: AMLODIPINE BESYLATE
  3. MOVICOL [Concomitant]
     Active Substance: POLYETHYLENE GLYCOL 3350\POTASSIUM CHLORIDE\SODIUM BICARBONATE\SODIUM CHLORIDE
     Dosage: IF NEEDED
  4. NOVONORM [Concomitant]
     Active Substance: REPAGLINIDE
     Indication: DIABETES MELLITUS
  5. GALVUS [Concomitant]
     Active Substance: VILDAGLIPTIN
     Indication: DIABETES MELLITUS
  6. ASAFLOW [Concomitant]
     Active Substance: ASPIRIN
  7. EMCONCOR [Concomitant]
     Active Substance: BISOPROLOL FUMARATE
  8. DIOVAN [Concomitant]
     Active Substance: VALSARTAN
  9. MONOXIDINE [Concomitant]
     Dosage: 0.2 MG, ONCE DAILY IN THE MORNING, 0.4 MG, ONCE DAILY IN THE EVENING
  10. UNI DIAMICRON [Concomitant]
     Active Substance: GLICLAZIDE
     Indication: DIABETES MELLITUS
     Dosage: THREE TIMES A DAY
  11. BICLAR [Concomitant]
     Active Substance: CLARITHROMYCIN
     Dates: start: 2016, end: 20160703
  12. ZOCOR [Concomitant]
     Active Substance: SIMVASTATIN
  13. GALVUS [Concomitant]
     Active Substance: VILDAGLIPTIN
     Indication: DIABETES MELLITUS
     Dosage: TWO TIMES A DAY
  14. CORUNO RETARD [Concomitant]
  15. PANTOMED [Concomitant]
     Active Substance: DEXPANTHENOL
  16. UNI DIAMICRON [Concomitant]
     Active Substance: GLICLAZIDE
     Indication: DIABETES MELLITUS
  17. BURINEX [Concomitant]
     Active Substance: BUMETANIDE
  18. ALENDRONATE [Concomitant]
     Active Substance: ALENDRONATE SODIUM
  19. NOVONORM [Concomitant]
     Active Substance: REPAGLINIDE
     Indication: DIABETES MELLITUS
     Dosage: DAILY
  20. CALCIUM CARBONATE. [Concomitant]
     Active Substance: CALCIUM CARBONATE
  21. CALCIUM KAYEXELATE [Concomitant]
  22. D-CURE [Concomitant]
     Dosage: ONCE A WEEK
  23. PLAVIX [Concomitant]
     Active Substance: CLOPIDOGREL BISULFATE
  24. TRAZODONE [Concomitant]
     Active Substance: TRAZODONE HYDROCHLORIDE
     Dosage: 100.0MG AS REQUIRED

REACTIONS (9)
  - Respiratory failure [Unknown]
  - Acute kidney injury [Unknown]
  - Hypoglycaemic coma [Fatal]
  - Atypical pneumonia [Unknown]
  - Cerebrovascular accident [Unknown]
  - Pneumonia [Unknown]
  - Enterobacter sepsis [Fatal]
  - Pneumonia haemophilus [Unknown]
  - Fall [Unknown]

NARRATIVE: CASE EVENT DATE: 201606
